FAERS Safety Report 18748560 (Version 4)
Quarter: 2021Q1

REPORT INFORMATION
  Report Type: Spontaneous
  Country: EG (occurrence: EG)
  Receive Date: 20210115
  Receipt Date: 20210225
  Transmission Date: 20210419
  Serious: Yes (Disabling, Other)
  Sender: FDA-Public Use
  Company Number: EG-NOVOPROD-779752

PATIENT
  Sex: Male

DRUGS (4)
  1. AVEROZOLID [Concomitant]
     Active Substance: LINEZOLID
     Dosage: 2 TAB/DAY
     Route: 048
  2. RYZODEG 70/30 [Suspect]
     Active Substance: INSULIN ASPART\INSULIN DEGLUDEC
     Indication: DIABETES MELLITUS
     Dosage: ONE DOSE BEFORE LUNCH
     Route: 065
     Dates: start: 20201231, end: 202101
  3. AVEROZOLID [Concomitant]
     Active Substance: LINEZOLID
     Dosage: 1 TAB/DAY (FROM 10?12 DAYS AGO)
     Route: 048
  4. AVEROZOLID [Concomitant]
     Active Substance: LINEZOLID
     Indication: AMPUTATION
     Dosage: 1 TAB/DAY
     Route: 048

REACTIONS (2)
  - Foot amputation [Unknown]
  - Hypoglycaemic coma [Recovered/Resolved]

NARRATIVE: CASE EVENT DATE: 202101
